FAERS Safety Report 7372881-3 (Version None)
Quarter: 2011Q1

REPORT INFORMATION
  Report Type: 
  Country: None (occurrence: None)
  Receive Date: 20110324
  Receipt Date: 20110217
  Transmission Date: 20110831
  Serious: Yes (Other)
  Sender: FDA-Public Use
  Company Number: US-BAYER-2011-001042

PATIENT
  Sex: Female
  Weight: 0.65 kg

DRUGS (2)
  1. MIRENA [Suspect]
     Dosage: UNK
     Route: 064
     Dates: start: 20100604, end: 20101109
  2. MIRENA [Suspect]
     Dosage: UNK
     Route: 064
     Dates: start: 20100604, end: 20101109

REACTIONS (5)
  - PREMATURE BABY [None]
  - SMALL FOR DATES BABY [None]
  - BRONCHOPULMONARY DYSPLASIA [None]
  - CAESAREAN SECTION [None]
  - APGAR SCORE LOW [None]
